FAERS Safety Report 4830290-2 (Version None)
Quarter: 2005Q4

REPORT INFORMATION
  Report Type: 
  Country: None (occurrence: None)
  Receive Date: 20051114
  Receipt Date: 20051028
  Transmission Date: 20060501
  Serious: Yes (Other)
  Sender: FDA-Public Use
  Company Number: USA0507103917

PATIENT
  Age: 83 Year
  Sex: Female

DRUGS (1)
  1. FORTEO [Suspect]
     Indication: OSTEOPOROSIS
     Dates: start: 20050501

REACTIONS (4)
  - ARTHRALGIA [None]
  - LYMPHOMA [None]
  - PHARMACEUTICAL PRODUCT COMPLAINT [None]
  - URINARY TRACT INFECTION [None]
